FAERS Safety Report 12633327 (Version 2)
Quarter: 2016Q3

REPORT INFORMATION
  Report Type: Spontaneous
  Country: US (occurrence: US)
  Receive Date: 20160808
  Receipt Date: 20160808
  Transmission Date: 20161109
  Serious: No
  Sender: FDA-Public Use
  Company Number: US-BEH-2016060535

PATIENT
  Sex: Female
  Weight: 64 kg

DRUGS (20)
  1. DIPHENHYDRAMINE. [Concomitant]
     Active Substance: DIPHENHYDRAMINE
  2. COREG [Concomitant]
     Active Substance: CARVEDILOL
  3. MUCINEX ER [Concomitant]
  4. OXYGEN. [Concomitant]
     Active Substance: OXYGEN
  5. ACETAMINOPHEN. [Concomitant]
     Active Substance: ACETAMINOPHEN
  6. ACETYLCYSTEINE. [Concomitant]
     Active Substance: ACETYLCYSTEINE
  7. VITAMIN D [Concomitant]
     Active Substance: CHOLECALCIFEROL
  8. EPIPEN [Concomitant]
     Active Substance: EPINEPHRINE
  9. ZOCOR [Concomitant]
     Active Substance: SIMVASTATIN
  10. PROTONIX [Concomitant]
     Active Substance: PANTOPRAZOLE SODIUM
  11. AMBIEN [Concomitant]
     Active Substance: ZOLPIDEM TARTRATE
  12. LEXAPRO [Concomitant]
     Active Substance: ESCITALOPRAM OXALATE
  13. SPIRIVA [Concomitant]
     Active Substance: TIOTROPIUM BROMIDE MONOHYDRATE
  14. LIDOCAINE. [Concomitant]
     Active Substance: LIDOCAINE
  15. PREDNISONE. [Concomitant]
     Active Substance: PREDNISONE
  16. COZAAR [Concomitant]
     Active Substance: LOSARTAN POTASSIUM
  17. ALBUTEROL. [Concomitant]
     Active Substance: ALBUTEROL
  18. HIZENTRA [Suspect]
     Active Substance: HUMAN IMMUNOGLOBULIN G
     Indication: IMMUNODEFICIENCY COMMON VARIABLE
     Route: 058
  19. ALDACTONE [Concomitant]
     Active Substance: SPIRONOLACTONE
  20. ZYRTEC [Concomitant]
     Active Substance: CETIRIZINE HYDROCHLORIDE

REACTIONS (1)
  - Sinusitis [Unknown]
